FAERS Safety Report 23576046 (Version 1)
Quarter: 2024Q1

REPORT INFORMATION
  Report Type: Spontaneous
  Country: US (occurrence: US)
  Receive Date: 20240228
  Receipt Date: 20240228
  Transmission Date: 20240410
  Serious: No
  Sender: FDA-Public Use
  Company Number: US-PFIZER INC-202400050933

PATIENT
  Age: 68 Year
  Sex: Female
  Weight: 79.83 kg

DRUGS (1)
  1. PAXLOVID [Suspect]
     Active Substance: NIRMATRELVIR\RITONAVIR
     Dosage: 3 DF, 2X/DAY (3 PILLS IN THE MORNING, 3 PILLS IN THE EVENING WITH FOOD  FOR 5 DAYS)
     Route: 048
     Dates: start: 20240221, end: 20240225

REACTIONS (2)
  - Disease recurrence [Unknown]
  - COVID-19 [Unknown]
